FAERS Safety Report 8037082-4 (Version None)
Quarter: 2012Q1

REPORT INFORMATION
  Report Type: 
  Country: None (occurrence: None)
  Receive Date: 20120111
  Receipt Date: 20120106
  Transmission Date: 20120608
  Serious: Yes (Hospitalization)
  Sender: FDA-Public Use
  Company Number: US-GLAXOSMITHKLINE-A0955256A

PATIENT
  Age: 63 Year
  Sex: Male

DRUGS (6)
  1. DURAGESIC-100 [Concomitant]
     Dates: end: 20111125
  2. NEURONTIN [Concomitant]
     Dates: end: 20111125
  3. SIMVASTATIN [Concomitant]
     Dates: end: 20111125
  4. ADVAIR DISKUS 100/50 [Suspect]
     Indication: ASTHMA
     Dosage: 1PUFF TWICE PER DAY
     Route: 055
     Dates: start: 20100515, end: 20111125
  5. PRILOSEC [Concomitant]
     Dates: end: 20111125
  6. ADVAIR DISKUS 100/50 [Suspect]
     Indication: DYSPNOEA
     Route: 065
     Dates: start: 20070101

REACTIONS (10)
  - FEELING ABNORMAL [None]
  - GAIT DISTURBANCE [None]
  - FATIGUE [None]
  - PNEUMONIA [None]
  - ADRENAL DISORDER [None]
  - HYPERHIDROSIS [None]
  - DISSOCIATION [None]
  - TREMOR [None]
  - ASTHENIA [None]
  - FEAR [None]
